FAERS Safety Report 4539307-6 (Version None)
Quarter: 2004Q4

REPORT INFORMATION
  Report Type: 
  Country: None (occurrence: None)
  Receive Date: 20041223
  Receipt Date: 20041210
  Transmission Date: 20050328
  Serious: Yes (Hospitalization)
  Sender: FDA-Public Use
  Company Number: 230230M04USA

PATIENT
  Age: 56 Year
  Sex: Female

DRUGS (5)
  1. REBIF [Suspect]
     Indication: MULTIPLE SCLEROSIS
     Dosage: 22 MCG, 3 IN 1 WEEKS, SUBCUTANEOUS
     Route: 058
     Dates: start: 20021201, end: 20041020
  2. DILANTIN [Concomitant]
  3. VITAMIN C (ASCORBIC ACID) [Concomitant]
  4. FOLIC ACID [Concomitant]
  5. VALPROIC ACID [Concomitant]

REACTIONS (14)
  - ACUTE RESPIRATORY FAILURE [None]
  - ALANINE AMINOTRANSFERASE INCREASED [None]
  - ASPARTATE AMINOTRANSFERASE INCREASED [None]
  - ASTHENIA [None]
  - EMBOLISM [None]
  - GRAND MAL CONVULSION [None]
  - LETHARGY [None]
  - LIVER FUNCTION TEST ABNORMAL [None]
  - PNEUMONIA ASPIRATION [None]
  - PYURIA [None]
  - SKIN HYPERPIGMENTATION [None]
  - STRESS SYMPTOMS [None]
  - TROPONIN INCREASED [None]
  - WHITE BLOOD CELLS URINE POSITIVE [None]
